FAERS Safety Report 9634994 (Version 1)
Quarter: 2013Q4

REPORT INFORMATION
  Report Type: Spontaneous
  Country: US (occurrence: US)
  Receive Date: 20131021
  Receipt Date: 20131021
  Transmission Date: 20140711
  Serious: No
  Sender: FDA-Public Use
  Company Number: US-PURDUE-USA-2013-0102659

PATIENT
  Age: 53 Year
  Sex: Female

DRUGS (3)
  1. BUTRANS [Suspect]
     Indication: PAIN
     Dosage: 5 MCG/HR, WEEKLY
     Route: 062
     Dates: start: 20130328
  2. HYDROCODONE [Concomitant]
     Indication: BREAKTHROUGH PAIN
     Dosage: 10/325 MG, PRN
     Route: 048
     Dates: start: 200912
  3. FLEXERIL                           /00428402/ [Concomitant]
     Indication: PAIN
     Dosage: 5 MG, DAILY
     Route: 048
     Dates: start: 2011

REACTIONS (4)
  - Application site pruritus [Not Recovered/Not Resolved]
  - Application site erythema [Not Recovered/Not Resolved]
  - Application site vesicles [Not Recovered/Not Resolved]
  - Product adhesion issue [Recovered/Resolved]
